FAERS Safety Report 10077207 (Version 2)
Quarter: 2014Q2

REPORT INFORMATION
  Report Type: Spontaneous
  Country: US (occurrence: US)
  Receive Date: 20140414
  Receipt Date: 20140414
  Transmission Date: 20141212
  Serious: No
  Sender: FDA-Public Use
  Company Number: US-BANPHARM-20130895

PATIENT
  Age: 71 Year
  Sex: Female
  Weight: 78.47 kg

DRUGS (12)
  1. ALEVE LIQUID GELS 220MG [Suspect]
     Indication: MYALGIA
     Dosage: 1 DF, QD,
     Route: 048
     Dates: start: 20130215, end: 20130220
  2. 81 MG BAYER ASPIRIN [Concomitant]
  3. FEMARA [Concomitant]
  4. VITAMIN B12 SHOTS [Concomitant]
  5. VITAMIN D [Concomitant]
  6. MAGNESIUM [Concomitant]
  7. ZINC [Concomitant]
  8. SIMVASTATIN [Concomitant]
  9. METFORMIN [Concomitant]
  10. FISH OIL [Concomitant]
  11. ATENOLOL [Concomitant]
  12. PLAVIX [Concomitant]

REACTIONS (1)
  - Drug ineffective [Not Recovered/Not Resolved]
